FAERS Safety Report 15180100 (Version 4)
Quarter: 2019Q1

REPORT INFORMATION
  Report Type: Spontaneous
  Country: US (occurrence: US)
  Receive Date: 20180723
  Receipt Date: 20190311
  Transmission Date: 20190417
  Serious: No
  Sender: FDA-Public Use
  Company Number: US-PFIZER INC-2018294256

PATIENT
  Age: 63 Year
  Sex: Female
  Weight: 111.57 kg

DRUGS (1)
  1. IBRANCE [Suspect]
     Active Substance: PALBOCICLIB
     Indication: BREAST CANCER METASTATIC
     Dosage: 125 MG, CYCLIC (DAYS 1-21 Q28 DAYS)
     Route: 048
     Dates: start: 201805, end: 201902

REACTIONS (4)
  - Dry skin [Unknown]
  - Stomatitis [Recovered/Resolved]
  - Lip swelling [Unknown]
  - Swollen tongue [Unknown]

NARRATIVE: CASE EVENT DATE: 201807
